FAERS Safety Report 17025601 (Version 10)
Quarter: 2021Q1

REPORT INFORMATION
  Report Type: Spontaneous
  Country: FR (occurrence: FR)
  Receive Date: 20191113
  Receipt Date: 20210304
  Transmission Date: 20210419
  Serious: Yes (Hospitalization, Other)
  Sender: FDA-Public Use
  Company Number: FR-PFIZER INC-2019484188

PATIENT
  Age: 45 Year
  Sex: Female
  Weight: 65 kg

DRUGS (1)
  1. LIPUR [Suspect]
     Active Substance: GEMFIBROZIL
     Indication: DYSLIPIDAEMIA
     Dosage: 1 TABLET OF 450 MG/DAY
     Dates: start: 201810

REACTIONS (25)
  - Necrotising myositis [Unknown]
  - Hypotonia [Unknown]
  - Off label use [Unknown]
  - Quadriparesis [Recovering/Resolving]
  - Muscle necrosis [Unknown]
  - Choking [Recovered/Resolved]
  - Rash [Unknown]
  - Pain in extremity [Unknown]
  - Oedema peripheral [Unknown]
  - Hypergammaglobulinaemia [Unknown]
  - Arthralgia [Unknown]
  - Inflammatory pain [Unknown]
  - Mobility decreased [Unknown]
  - Dyspnoea exertional [Unknown]
  - Hepatocellular injury [Unknown]
  - Rhabdomyolysis [Unknown]
  - Myalgia [Not Recovered/Not Resolved]
  - Musculoskeletal stiffness [Unknown]
  - Paraesthesia [Unknown]
  - Dermatomyositis [Recovering/Resolving]
  - Asthenia [Unknown]
  - Pruritus [Unknown]
  - Dysphagia [Unknown]
  - Myopathy [Unknown]
  - Gait disturbance [Unknown]

NARRATIVE: CASE EVENT DATE: 201810
